FAERS Safety Report 5204148-3 (Version None)
Quarter: 2007Q1

REPORT INFORMATION
  Report Type: 
  Country: None (occurrence: None)
  Receive Date: 20070110
  Receipt Date: 20051216
  Transmission Date: 20070707
  Serious: Yes (Other)
  Sender: FDA-Public Use
  Company Number: US-BRISTOL-MYERS SQUIBB COMPANY-13220934

PATIENT
  Age: 6 Year
  Sex: Male

DRUGS (4)
  1. ABILIFY [Suspect]
     Route: 048
     Dates: start: 20051214
  2. RISPERDAL [Concomitant]
  3. SEROQUEL [Concomitant]
  4. CLONIDINE [Concomitant]

REACTIONS (1)
  - CONVULSION [None]
